FAERS Safety Report 9617929 (Version 2)
Quarter: 2013Q4

REPORT INFORMATION
  Report Type: Report from Study
  Country: LB (occurrence: LB)
  Receive Date: 20131011
  Receipt Date: 20131011
  Transmission Date: 20140711
  Serious: Yes (Hospitalization)
  Sender: FDA-Public Use
  Company Number: LB-B.I. PHARMACEUTICALS,INC./RIDGEFIELD-2013-BI-31546AE

PATIENT
  Sex: Female

DRUGS (4)
  1. SPIRIVA [Suspect]
     Indication: CHRONIC OBSTRUCTIVE PULMONARY DISEASE
     Dosage: 1 ANZ
     Route: 055
     Dates: start: 20130905
  2. ANTIDIABETIC [Concomitant]
  3. ANTIHYPERTENSIVE [Concomitant]
  4. CARDIAC MEDICATION [Concomitant]

REACTIONS (1)
  - Cardiac disorder [Recovered/Resolved]
